FAERS Safety Report 22147818 (Version 1)
Quarter: 2023Q1

REPORT INFORMATION
  Report Type: Report from Study
  Country: US (occurrence: US)
  Receive Date: 20230328
  Receipt Date: 20230328
  Transmission Date: 20230418
  Serious: No
  Sender: FDA-Public Use
  Company Number: US-002147023-NVSC2023US070328

PATIENT
  Sex: Female

DRUGS (1)
  1. NAPROXEN [Suspect]
     Active Substance: NAPROXEN
     Indication: Multiple sclerosis
     Dosage: UNK UNK, QMO
     Route: 065

REACTIONS (1)
  - Drug hypersensitivity [Unknown]
